FAERS Safety Report 9493268 (Version 1)
Quarter: 2013Q3

REPORT INFORMATION
  Report Type: Spontaneous
  Country: US (occurrence: US)
  Receive Date: 20130902
  Receipt Date: 20130902
  Transmission Date: 20140515
  Serious: Yes (Hospitalization, Other)
  Sender: FDA-Public Use
  Company Number: PHEH2013US018334

PATIENT
  Age: 61 Year
  Sex: Female

DRUGS (14)
  1. EXFORGE HCT [Suspect]
     Indication: HYPERTENSION
     Dosage: 1 DF, (160/5/25 MG) QD
     Route: 048
  2. EFEXOR XR [Concomitant]
     Dosage: 150 MG, QD
  3. CELEBREX [Concomitant]
     Dosage: 100 MG, UNK
  4. LEVOXYL [Concomitant]
     Dosage: 100 UG, QD
  5. CRESTOR [Concomitant]
     Dosage: 50 MG, UNK
  6. COUMADINE [Concomitant]
     Dosage: 10 MG, QW5
  7. COUMADINE [Concomitant]
     Dosage: 5 MG, QW2
  8. GABAPENTIN [Concomitant]
     Dosage: 300 MG, TID
  9. ALPRAZOLAM [Concomitant]
     Indication: ANXIETY
     Dosage: 0.50 MG, (O,25 MG BID) PRN
  10. ALPRAZOLAM [Concomitant]
     Indication: INSOMNIA
  11. HYDROCODONE W/APAP [Concomitant]
     Dosage: 1 DF, (5/500 MG) BID
  12. MULTI-VIT [Concomitant]
     Indication: ANTIOXIDANT THERAPY
  13. MULTI-VIT [Concomitant]
     Indication: NEUROPATHY PERIPHERAL
  14. TYLENOL [Concomitant]
     Dosage: UNK UKN, IRD

REACTIONS (17)
  - Intervertebral disc protrusion [Unknown]
  - Monoplegia [Unknown]
  - Hypoaesthesia [Unknown]
  - Pain in extremity [Unknown]
  - Paraesthesia [Unknown]
  - Hypotonia [Unknown]
  - Pulmonary embolism [Unknown]
  - Spinal cord haemorrhage [Unknown]
  - Sensation of heaviness [Unknown]
  - Dry eye [Unknown]
  - Asthenopia [Unknown]
  - Fatigue [Unknown]
  - Dry mouth [Unknown]
  - Visual impairment [Unknown]
  - Vision blurred [Unknown]
  - Local swelling [Recovered/Resolved]
  - Joint swelling [Recovered/Resolved]
